FAERS Safety Report 6337542-8 (Version None)
Quarter: 2009Q3

REPORT INFORMATION
  Report Type: 
  Country: None (occurrence: None)
  Receive Date: 20090902
  Receipt Date: 20090824
  Transmission Date: 20100115
  Serious: Yes (Hospitalization, Other)
  Sender: FDA-Public Use
  Company Number: US-AMGEN-QUU361608

PATIENT
  Sex: Female

DRUGS (3)
  1. ENBREL [Suspect]
     Indication: RHEUMATOID ARTHRITIS
     Route: 058
     Dates: start: 20070322
  2. PLAQUENIL [Concomitant]
  3. METHOTREXATE [Concomitant]
     Route: 048

REACTIONS (7)
  - FALL [None]
  - FINGER DEFORMITY [None]
  - GAIT DISTURBANCE [None]
  - LIPOMA [None]
  - NEUROPATHY PERIPHERAL [None]
  - PAIN IN EXTREMITY [None]
  - TIBIA FRACTURE [None]
